FAERS Safety Report 5754631-7 (Version None)
Quarter: 2008Q2

REPORT INFORMATION
  Report Type: 
  Country: None (occurrence: None)
  Receive Date: 20080530
  Receipt Date: 20080201
  Transmission Date: 20081010
  Serious: No
  Sender: FDA-Public Use
  Company Number: US-BAYER-US-2007-043388

PATIENT
  Age: 32 Year
  Sex: Female

DRUGS (3)
  1. MAGNEVIST [Suspect]
     Indication: NUCLEAR MAGNETIC RESONANCE IMAGING
     Dosage: TOTAL DAILY DOSE: 20 ML  UNIT DOSE: 20 ML
     Route: 042
     Dates: start: 20071111, end: 20071111
  2. ALDOSPIRONE [Concomitant]
  3. PREDNISONE TAB [Concomitant]
     Indication: PREMEDICATION

REACTIONS (1)
  - URTICARIA [None]
